FAERS Safety Report 9125642 (Version 3)
Quarter: 2013Q2

REPORT INFORMATION
  Report Type: Spontaneous
  Country: US (occurrence: US)
  Receive Date: 20130227
  Receipt Date: 20130423
  Transmission Date: 20140414
  Serious: No
  Sender: FDA-Public Use
  Company Number: US-MERCK-1302USA011005

PATIENT
  Sex: Female

DRUGS (6)
  1. ZETIA [Suspect]
     Dosage: 10 MG, QD
     Route: 048
     Dates: end: 2006
  2. ZETIA [Suspect]
     Dosage: UNK
     Route: 048
     Dates: start: 20130110
  3. PLAVIX [Concomitant]
     Dosage: UNK
     Dates: end: 2006
  4. CRESTOR [Concomitant]
  5. LISINOPRIL [Concomitant]
  6. METOPROLOL [Concomitant]

REACTIONS (1)
  - No adverse event [Unknown]
